FAERS Safety Report 24589428 (Version 2)
Quarter: 2024Q4

REPORT INFORMATION
  Report Type: Spontaneous
  Country: FR (occurrence: FR)
  Receive Date: 20241107
  Receipt Date: 20241121
  Transmission Date: 20250114
  Serious: Yes (Other)
  Sender: GLAXOSMITHKLINE
  Company Number: None

PATIENT

DRUGS (3)
  1. NUCALA [Suspect]
     Active Substance: MEPOLIZUMAB
     Indication: Asthma
     Dosage: 100 MG, MO
     Route: 064
     Dates: start: 20240329, end: 20240816
  2. SINGULAIR [Suspect]
     Active Substance: MONTELUKAST SODIUM
     Indication: Asthma
     Dosage: 10 MG, QD (1 TABLET IN THE EVENING)
     Route: 064
     Dates: start: 20231215, end: 20240816
  3. XOLAIR [Suspect]
     Active Substance: OMALIZUMAB
     Indication: Asthma
     Dosage: UNK, MO
     Route: 064
     Dates: start: 20231215, end: 20240314

REACTIONS (4)
  - Congenital hypothyroidism [Not Recovered/Not Resolved]
  - Term birth [Recovered/Resolved]
  - Ectopic thyroid [Not Recovered/Not Resolved]
  - Foetal exposure during pregnancy [Unknown]

NARRATIVE: CASE EVENT DATE: 20231215
